FAERS Safety Report 8065962-2 (Version None)
Quarter: 2012Q1

REPORT INFORMATION
  Report Type: 
  Country: None (occurrence: None)
  Receive Date: 20120117
  Receipt Date: 20120103
  Transmission Date: 20120608
  Serious: Yes (Other)
  Sender: FDA-Public Use
  Company Number: DSU-2012-00118

PATIENT
  Age: 32 Year
  Sex: Female
  Weight: 75 kg

DRUGS (7)
  1. PIL-FOOD (CYSTEINE HYDROCHLORIDE, CYSTINE, DL-METHIONINE, LACTALBUMIN, [Concomitant]
  2. FLUOXETINE [Concomitant]
  3. OLMESARTAN MEDOXOMIL AND HYDROCHLOROTHIZIDE [Suspect]
     Indication: HYPERTENSION
     Dosage: 20/6.25 MG (1/2 TABLET OF 40/12.5 MG QD), PER ORAL
     Route: 048
     Dates: start: 20090101
  4. OLMESARTAN MEDOXOMIL [Suspect]
     Indication: PRODUCT USED FOR UNKNOWN INDICATION
     Dosage: PER ORAL
     Route: 048
  5. RIVOTRIL (CLONAZEPAM) (CLONAZEPAM) [Concomitant]
  6. CALCIUM (CALCIUM) (CALCIUM) [Concomitant]
  7. CENTRUM (VITAMINS WITH MINERALS) [Concomitant]

REACTIONS (2)
  - ILL-DEFINED DISORDER [None]
  - DRUG DISPENSING ERROR [None]
